FAERS Safety Report 13394951 (Version 2)
Quarter: 2017Q3

REPORT INFORMATION
  Report Type: Spontaneous
  Country: US (occurrence: US)
  Receive Date: 20170403
  Receipt Date: 20170807
  Transmission Date: 20171127
  Serious: Yes (Hospitalization)
  Sender: FDA-Public Use
  Company Number: US-AEGERION PHARMACEUTICAL, INC-AEGR003082

PATIENT
  Age: 43 Year
  Sex: Female

DRUGS (2)
  1. MYALEPT [Suspect]
     Active Substance: METRELEPTIN
     Indication: CONGENITAL GENERALISED LIPODYSTROPHY
     Dosage: 3.75 MG, EVERY 12 HOURS
     Route: 058
     Dates: start: 20140814, end: 20170218
  2. MYALEPT [Suspect]
     Active Substance: METRELEPTIN
     Dosage: 3.75 MG, EVERY 12 HOURS
     Dates: start: 20170312

REACTIONS (3)
  - Hypoglycaemia [Recovered/Resolved]
  - Therapy cessation [Recovered/Resolved]
  - Hair growth abnormal [Unknown]

NARRATIVE: CASE EVENT DATE: 2017
